FAERS Safety Report 4797963-1 (Version None)
Quarter: 2005Q3

REPORT INFORMATION
  Report Type: 
  Country: None (occurrence: None)
  Receive Date: 20050929
  Receipt Date: 20050826
  Transmission Date: 20060218
  Serious: No
  Sender: FDA-Public Use
  Company Number: 05P-163-0309506-00

PATIENT
  Age: 62 Year
  Sex: Female
  Weight: 72.5755 kg

DRUGS (12)
  1. HUMIRA [Suspect]
     Indication: RHEUMATOID ARTHRITIS
     Dosage: 40 MG, 1 IN 1 WK, SUBCUTANEOUS
     Route: 058
     Dates: start: 20050401
  2. CITALOPRAM HYDROBROMIDE [Concomitant]
  3. ALPRAZOLAM [Concomitant]
  4. TRAZODONE HCL [Concomitant]
  5. VICODIN [Concomitant]
  6. FOLIC ACID [Concomitant]
  7. OSCAL PLUS [Concomitant]
  8. POTASSIUM [Concomitant]
  9. ESOMEPRAZOLE [Concomitant]
  10. TRIAMCINOLONE ACETONIDE [Concomitant]
  11. PROVENTIL [Concomitant]
  12. HYDROXYZINE [Concomitant]

REACTIONS (8)
  - BLOOD PRESSURE INCREASED [None]
  - EYE PAIN [None]
  - INCREASED TENDENCY TO BRUISE [None]
  - NAUSEA [None]
  - NECK PAIN [None]
  - PAIN IN EXTREMITY [None]
  - PRURITUS GENERALISED [None]
  - SINUSITIS [None]
